FAERS Safety Report 22322127 (Version 1)
Quarter: 2023Q2

REPORT INFORMATION
  Report Type: Spontaneous
  Country: US (occurrence: US)
  Receive Date: 20230516
  Receipt Date: 20230516
  Transmission Date: 20230721
  Serious: Yes (Other)
  Sender: FDA-Public Use
  Company Number: US-Hikma Pharmaceuticals USA Inc.-US-H14001-22-02170

PATIENT
  Sex: Female

DRUGS (9)
  1. PREDNISONE [Suspect]
     Active Substance: PREDNISONE
     Indication: Dermatitis contact
     Route: 065
     Dates: start: 202207
  2. PREDNISONE [Suspect]
     Active Substance: PREDNISONE
     Route: 065
     Dates: start: 2022
  3. PREDNISONE [Suspect]
     Active Substance: PREDNISONE
     Route: 065
     Dates: start: 2022
  4. PREDNISONE [Suspect]
     Active Substance: PREDNISONE
     Dosage: ONE TABLET
     Route: 065
     Dates: start: 2022
  5. PREDNISONE [Suspect]
     Active Substance: PREDNISONE
     Dosage: ONE HALF OF TABLET
     Route: 065
     Dates: start: 2022
  6. AMBI FADE NORMAL SKIN [Suspect]
     Active Substance: HYDROQUINONE\OCTINOXATE
     Indication: Skin discolouration
     Dosage: ONE TIME APPLIED
     Route: 061
     Dates: start: 20220720, end: 20220720
  7. HYDROXYZINE [Suspect]
     Active Substance: HYDROXYZINE HYDROCHLORIDE
     Indication: Dermatitis contact
     Route: 065
     Dates: start: 202207
  8. METFORMIN [Concomitant]
     Active Substance: METFORMIN HYDROCHLORIDE
     Indication: Product used for unknown indication
     Dosage: UNKNOWN
     Route: 048
  9. LOSARTAN [Concomitant]
     Active Substance: LOSARTAN
     Indication: Product used for unknown indication
     Dosage: UNKNOWN
     Route: 065

REACTIONS (2)
  - Blood glucose increased [Unknown]
  - Hypertension [Unknown]

NARRATIVE: CASE EVENT DATE: 20220101
